FAERS Safety Report 5874056-3 (Version None)
Quarter: 2008Q3

REPORT INFORMATION
  Report Type: 
  Country: None (occurrence: None)
  Receive Date: 20080908
  Receipt Date: 20080902
  Transmission Date: 20090109
  Serious: Yes (Hospitalization)
  Sender: FDA-Public Use
  Company Number: PL-AVENTIS-200818275GDDC

PATIENT
  Age: 58 Year
  Sex: Female
  Weight: 68 kg

DRUGS (6)
  1. ARAVA [Suspect]
     Indication: RHEUMATOID ARTHRITIS
     Route: 048
     Dates: start: 20041001, end: 20060405
  2. ENCORTON [Concomitant]
     Indication: RHEUMATOID ARTHRITIS
     Route: 048
  3. VITAMINS, OTHER COMBINATIONS [Concomitant]
     Dosage: DOSE: 2 TBLS
     Route: 048
  4. CALPEROS                           /00108001/ [Concomitant]
     Indication: OSTEOPOROSIS PROPHYLAXIS
     Route: 048
  5. ALFADIOL [Concomitant]
     Indication: OSTEOPOROSIS PROPHYLAXIS
     Route: 048
  6. PRESTARIUM [Concomitant]
     Route: 048

REACTIONS (4)
  - MENINGISM [None]
  - OPTIC NEURITIS [None]
  - PHARYNGITIS [None]
  - PYREXIA [None]
